FAERS Safety Report 24443659 (Version 3)
Quarter: 2024Q4

REPORT INFORMATION
  Report Type: Report from Study
  Country: JP (occurrence: JP)
  Receive Date: 20241016
  Receipt Date: 20241023
  Transmission Date: 20250115
  Serious: Yes (Hospitalization)
  Sender: SANOFI AVENTIS
  Company Number: JP-SA-2024SA281548

PATIENT
  Age: 64 Year
  Sex: Male
  Weight: 82 kg

DRUGS (13)
  1. ISATUXIMAB [Suspect]
     Active Substance: ISATUXIMAB
     Indication: Plasma cell myeloma
     Route: 041
  2. BORTEZOMIB [Suspect]
     Active Substance: BORTEZOMIB
     Indication: Plasma cell myeloma
     Dosage: 1.3 MG/M2, DAY 1, 4, 8, AND 11
     Route: 058
     Dates: start: 20240910, end: 2024
  3. BORTEZOMIB [Suspect]
     Active Substance: BORTEZOMIB
     Dosage: 1.0 MG/M2, DAY 1, 4, 8, AND 11
     Route: 058
     Dates: start: 2024
  4. DEXAMETHASONE [Suspect]
     Active Substance: DEXAMETHASONE
     Indication: Plasma cell myeloma
     Dosage: 40 MG/DAY, DAY 1, 4, 8, AND 11
     Route: 048
     Dates: start: 20240910
  5. LENALIDOMIDE [Suspect]
     Active Substance: LENALIDOMIDE
     Indication: Plasma cell myeloma
     Dosage: 25 MG/DAY, DAY 1-14
     Route: 048
     Dates: start: 20240910, end: 2024
  6. LENALIDOMIDE [Suspect]
     Active Substance: LENALIDOMIDE
     Dosage: 15 MG/DAY, DAY 1-14
     Route: 048
     Dates: start: 2024
  7. AZILSARTAN KAMEDOXOMIL [Concomitant]
     Active Substance: AZILSARTAN KAMEDOXOMIL
     Indication: Hypertension
     Dosage: 1 DF, QD AFTER BREAKFAST
     Route: 048
     Dates: end: 20240928
  8. ALLOPURINOL [Concomitant]
     Active Substance: ALLOPURINOL
     Indication: Hyperuricaemia
     Dosage: 1 DF, QD AFTER BREAKFAST
     Route: 048
     Dates: end: 20240928
  9. SULFAMETHOXAZOLE\TRIMETHOPRIM [Concomitant]
     Active Substance: SULFAMETHOXAZOLE\TRIMETHOPRIM
     Indication: Prophylaxis
     Dosage: 1 DF, QD AFTER BREAKFAST
     Route: 048
     Dates: start: 20240910, end: 20240928
  10. ASPIRIN [Concomitant]
     Active Substance: ASPIRIN
     Indication: Thrombosis prophylaxis
     Dosage: 1 DF, QD AFTER BREAKFAST
     Route: 048
     Dates: start: 20240910, end: 20240928
  11. LANSOPRAZOLE [Concomitant]
     Active Substance: LANSOPRAZOLE
     Indication: Prophylaxis against gastrointestinal ulcer
     Dosage: 1 DF, QD AFTER BREAKFAST
     Route: 048
     Dates: start: 20240910, end: 20240928
  12. VALACYCLOVIR HYDROCHLORIDE [Concomitant]
     Active Substance: VALACYCLOVIR HYDROCHLORIDE
     Indication: Prophylaxis
     Dosage: 1 DF, QD AFTER BREAKFAST
     Route: 048
     Dates: start: 20240910, end: 20240928
  13. LEVOFLOXACIN HEMIHYDRATE [Concomitant]
     Active Substance: LEVOFLOXACIN
     Indication: Infection prophylaxis
     Dosage: UNK
     Route: 065
     Dates: start: 20240917, end: 20240921

REACTIONS (1)
  - Diarrhoea [Recovered/Resolved]

NARRATIVE: CASE EVENT DATE: 20240922
